FAERS Safety Report 11977348 (Version 1)
Quarter: 2016Q1

REPORT INFORMATION
  Report Type: Spontaneous
  Country: BR (occurrence: BR)
  Receive Date: 20160129
  Receipt Date: 20160129
  Transmission Date: 20160526
  Serious: Yes (Hospitalization)
  Sender: FDA-Public Use
  Company Number: BR-BAYER-2016-013483

PATIENT
  Sex: Female

DRUGS (1)
  1. MIRENA [Suspect]
     Active Substance: LEVONORGESTREL
     Dosage: 20 MCG/24HR, CONT
     Route: 015
     Dates: start: 20141030

REACTIONS (5)
  - Malaise [None]
  - Complication of device removal [None]
  - Abdominal pain [None]
  - Cervix disorder [None]
  - Hyperhidrosis [None]

NARRATIVE: CASE EVENT DATE: 20141030
